FAERS Safety Report 6370007-6 (Version None)
Quarter: 2009Q3

REPORT INFORMATION
  Report Type: 
  Country: None (occurrence: None)
  Receive Date: 20090923
  Receipt Date: 20071023
  Transmission Date: 20100115
  Serious: No
  Sender: FDA-Public Use
  Company Number: US-ASTRAZENECA-2006UW07992

PATIENT
  Age: 28 Year
  Sex: Female
  Weight: 130.2 kg

DRUGS (17)
  1. SEROQUEL [Suspect]
     Indication: SCHIZOPHRENIA
     Route: 048
     Dates: start: 20020401
  2. SEROQUEL [Suspect]
     Indication: DEPRESSION
     Route: 048
     Dates: start: 20020401
  3. SEROQUEL [Suspect]
     Route: 048
     Dates: start: 20020401
  4. SEROQUEL [Suspect]
     Route: 048
     Dates: start: 20020401
  5. SEROQUEL [Suspect]
     Dosage: 75-400 MG
     Route: 048
     Dates: start: 20030820
  6. SEROQUEL [Suspect]
     Dosage: 75-400 MG
     Route: 048
     Dates: start: 20030820
  7. ABILIFY [Concomitant]
     Dosage: 10-20 MG
     Dates: start: 20030903
  8. CLOZARIL [Concomitant]
  9. GEODON [Concomitant]
     Dates: start: 20020101
  10. RISPERDAL [Concomitant]
     Dosage: 1-4 MG
     Dates: start: 20030514
  11. RISPERDAL [Concomitant]
     Dates: start: 20050101
  12. EFFEXOR [Concomitant]
     Dates: start: 20050806
  13. CELEXA [Concomitant]
     Dates: start: 20030514
  14. AMBIEN [Concomitant]
     Dates: start: 20050806
  15. LIPITOR [Concomitant]
     Dates: start: 20050806
  16. NEURONTIN [Concomitant]
     Dates: start: 20030618
  17. AVAPRO [Concomitant]
     Indication: BLOOD PRESSURE
     Dosage: 150-300 MG
     Dates: start: 20060325

REACTIONS (6)
  - BLOOD CHOLESTEROL INCREASED [None]
  - BLOOD TRIGLYCERIDES INCREASED [None]
  - DIABETES MELLITUS [None]
  - IMPAIRED FASTING GLUCOSE [None]
  - OBESITY [None]
  - TYPE 2 DIABETES MELLITUS [None]
